FAERS Safety Report 8313660-X (Version None)
Quarter: 2012Q2

REPORT INFORMATION
  Report Type: 
  Country: None (occurrence: None)
  Receive Date: 20120426
  Receipt Date: 20120424
  Transmission Date: 20120825
  Serious: Yes (Other)
  Sender: FDA-Public Use
  Company Number: US-PFIZER INC-2012019320

PATIENT
  Sex: Female
  Weight: 77.098 kg

DRUGS (3)
  1. LYRICA [Suspect]
     Indication: FIBROMYALGIA
     Dosage: 75 MG, 2X/DAY
     Route: 048
     Dates: end: 20120401
  2. VICODIN [Concomitant]
     Indication: PAIN
     Dosage: UNK
  3. BENICAR [Concomitant]
     Indication: HYPERTENSION
     Dosage: 40 MG

REACTIONS (5)
  - FEELING ABNORMAL [None]
  - PAIN [None]
  - TOOTH INFECTION [None]
  - ANXIETY [None]
  - DEPRESSION [None]
